FAERS Safety Report 7388728-5 (Version None)
Quarter: 2011Q2

REPORT INFORMATION
  Report Type: 
  Country: None (occurrence: None)
  Receive Date: 20110401
  Receipt Date: 20110321
  Transmission Date: 20111010
  Serious: Yes (Hospitalization)
  Sender: FDA-Public Use
  Company Number: US-CELGENEUS-163-21880-11032672

PATIENT
  Sex: Male

DRUGS (6)
  1. FINASTERIDE [Concomitant]
     Route: 065
  2. PEPCID [Concomitant]
     Route: 065
  3. SIMVASTATIN [Concomitant]
     Route: 065
  4. FELODIPINE [Concomitant]
     Route: 065
  5. REVLIMID [Suspect]
     Indication: MULTIPLE MYELOMA
     Dosage: 25 MILLIGRAM
     Route: 048
     Dates: start: 20110101
  6. LEXAPRO [Concomitant]
     Route: 065

REACTIONS (1)
  - ARTHROPATHY [None]
